FAERS Safety Report 9780979 (Version 8)
Quarter: 2014Q2

REPORT INFORMATION
  Report Type: Report from Study
  Country: JP (occurrence: JP)
  Receive Date: 20131224
  Receipt Date: 20140414
  Transmission Date: 20141212
  Serious: Yes (Hospitalization)
  Sender: FDA-Public Use
  Company Number: JP-JNJFOC-20130912055

PATIENT
  Age: 74 Year
  Sex: Male
  Weight: 58 kg

DRUGS (11)
  1. ABIRATERONE ACETATE [Suspect]
     Route: 048
  2. ABIRATERONE ACETATE [Suspect]
     Indication: PROSTATE CANCER
     Route: 048
     Dates: start: 20120307, end: 20140205
  3. PREDNISOLONE [Suspect]
     Indication: PROSTATE CANCER
     Route: 048
     Dates: start: 20120307, end: 20140205
  4. TAKEPRON [Concomitant]
     Indication: PROPHYLAXIS AGAINST GASTROINTESTINAL ULCER
     Route: 048
     Dates: start: 20120326
  5. NORVASC [Concomitant]
     Indication: HYPERTENSION
     Route: 048
  6. OLMETEC [Concomitant]
     Indication: HYPERTENSION
     Route: 048
  7. ZOLADEX LA [Concomitant]
     Indication: PROSTATE CANCER
     Route: 058
  8. GENTACIN [Concomitant]
     Indication: DERMATITIS
     Route: 062
     Dates: start: 20130214
  9. AZUNOL [Concomitant]
     Indication: DERMATITIS
     Route: 062
     Dates: start: 20130214
  10. BENET [Concomitant]
     Indication: OSTEOPOROSIS
     Route: 048
  11. INTAL [Concomitant]
     Indication: RHINITIS ALLERGIC
     Dosage: DOSE: SEVERAL TIMES PER DAY
     Route: 045
     Dates: start: 20120313

REACTIONS (2)
  - Gastrointestinal haemorrhage [Recovered/Resolved]
  - Gastrointestinal haemorrhage [Recovered/Resolved]
